FAERS Safety Report 5067979-9 (Version None)
Quarter: 2006Q3

REPORT INFORMATION
  Report Type: 
  Country: None (occurrence: None)
  Receive Date: 20060802
  Receipt Date: 20060612
  Transmission Date: 20061208
  Serious: Yes (Hospitalization)
  Sender: FDA-Public Use
  Company Number: DE-ROCHE-451180

PATIENT
  Age: 63 Year
  Sex: Female
  Weight: 96 kg

DRUGS (13)
  1. CAPECITABINE [Suspect]
     Indication: BREAST CANCER
     Dosage: D1-D14 QD21.
     Route: 048
     Dates: start: 20050511, end: 20060607
  2. CAPECITABINE [Suspect]
     Route: 048
     Dates: start: 20060622, end: 20060701
  3. HERCEPTIN [Suspect]
     Indication: BREAST CANCER
     Dosage: DOSAGE FORM: INFUSION. DOSE REPORTED AS  D1 Q D21.
     Route: 042
     Dates: start: 20060214, end: 20060721
  4. DOCETAXEL [Suspect]
     Indication: BREAST CANCER
     Dosage: DOSAGE FORM INFUSION. D1 Q D 21.
     Route: 042
     Dates: start: 20060511, end: 20060721
  5. DIMENHYDRINATE [Concomitant]
  6. MCP DROPS [Concomitant]
  7. PANTOZOL [Concomitant]
     Dates: start: 20060608, end: 20060610
  8. NOVALGIN [Concomitant]
     Dosage: PRN.
     Dates: start: 20060608, end: 20060609
  9. ZOFRAN [Concomitant]
     Dates: start: 20060608, end: 20060613
  10. FLUANXOL [Concomitant]
  11. L-THYROXIN [Concomitant]
  12. CITALOPRAM HYDROBROMIDE [Concomitant]
  13. BELOC-ZOK [Concomitant]
     Dates: start: 20060612

REACTIONS (9)
  - DIARRHOEA [None]
  - FALL [None]
  - FEBRILE NEUTROPENIA [None]
  - FRACTURE [None]
  - INFECTION [None]
  - PAIN [None]
  - PELVIC FRACTURE [None]
  - SYNCOPE [None]
  - VOMITING [None]
